FAERS Safety Report 17424174 (Version 1)
Quarter: 2020Q1

REPORT INFORMATION
  Report Type: Spontaneous
  Country: GB (occurrence: GB)
  Receive Date: 20200217
  Receipt Date: 20200217
  Transmission Date: 20200409
  Serious: Yes (Other)
  Sender: FDA-Public Use
  Company Number: GB-TEVA-2020-GB-1186582

PATIENT
  Age: 43 Year
  Sex: Female
  Weight: 66.67 kg

DRUGS (4)
  1. IODINE. [Concomitant]
     Active Substance: IODINE
  2. IRON [Concomitant]
     Active Substance: IRON
     Dosage: DURING MENSTRUAL CYCLE
  3. CO-AMOXICLAV [Suspect]
     Active Substance: AMOXICILLIN\CLAVULANATE POTASSIUM
     Dosage: 500MG/125MG FOR 7 DAYS. 3 DOSAGE FORMS
     Route: 048
     Dates: start: 20190923
  4. MAGNESIUM [Concomitant]
     Active Substance: MAGNESIUM
     Dosage: DURING MENSTRUAL CYCLE
     Route: 065

REACTIONS (3)
  - Pain in extremity [Not Recovered/Not Resolved]
  - Arthralgia [Unknown]
  - Peripheral swelling [Not Recovered/Not Resolved]

NARRATIVE: CASE EVENT DATE: 20190927
